FAERS Safety Report 12215104 (Version 1)
Quarter: 2016Q1

REPORT INFORMATION
  Report Type: Spontaneous
  Country: US (occurrence: US)
  Receive Date: 20160328
  Receipt Date: 20160328
  Transmission Date: 20160526
  Serious: Yes (Other)
  Sender: FDA-Public Use
  Company Number: US-AKORN PHARMACEUTICALS-2016AKN00172

PATIENT
  Sex: Female

DRUGS (1)
  1. MYORISAN [Suspect]
     Active Substance: ISOTRETINOIN
     Dosage: 40 MG, UNK
     Dates: start: 20141105, end: 20141114

REACTIONS (3)
  - Depression [Unknown]
  - Headache [Not Recovered/Not Resolved]
  - Unevaluable event [Unknown]
